FAERS Safety Report 21323589 (Version 3)
Quarter: 2022Q4

REPORT INFORMATION
  Report Type: Report from Study
  Country: US (occurrence: US)
  Receive Date: 20220912
  Receipt Date: 20221012
  Transmission Date: 20230113
  Serious: No
  Sender: FDA-Public Use
  Company Number: US-BRISTOL-MYERS SQUIBB COMPANY-2022-103949

PATIENT
  Age: 73 Year
  Sex: Female
  Weight: 69.85 kg

DRUGS (2)
  1. REVLIMID [Suspect]
     Active Substance: LENALIDOMIDE
     Indication: Myelodysplastic syndrome
     Dosage: 3W, 1W OFF
     Route: 048
     Dates: start: 20220801
  2. REVLIMID [Suspect]
     Active Substance: LENALIDOMIDE
     Indication: Plasma cell myeloma
     Route: 048
     Dates: start: 20220504

REACTIONS (8)
  - Dysphonia [Unknown]
  - Urinary tract infection [Unknown]
  - Lymphadenopathy [Unknown]
  - Sinusitis [Unknown]
  - Nausea [Unknown]
  - Pain [Unknown]
  - Oropharyngeal pain [Unknown]
  - Insomnia [Unknown]

NARRATIVE: CASE EVENT DATE: 20220401
